FAERS Safety Report 9803531 (Version 1)
Quarter: 2014Q1

REPORT INFORMATION
  Report Type: Spontaneous
  Country: US (occurrence: US)
  Receive Date: 20140108
  Receipt Date: 20140108
  Transmission Date: 20141002
  Serious: No
  Sender: FDA-Public Use
  Company Number: US-GLAXOSMITHKLINE-A1005077A

PATIENT
  Age: 40 Year
  Sex: Female

DRUGS (3)
  1. LOVAZA [Suspect]
     Indication: INFLAMMATION
     Dosage: 1CAP TWICE PER DAY
     Route: 048
     Dates: start: 201207, end: 201207
  2. VITAMIN D + CALCIUM [Concomitant]
  3. MAGNESIUM [Concomitant]

REACTIONS (4)
  - Nausea [Unknown]
  - Dyspepsia [Unknown]
  - Flatulence [Unknown]
  - Hypersensitivity [Unknown]
